FAERS Safety Report 8258399-4 (Version None)
Quarter: 2012Q2

REPORT INFORMATION
  Report Type: 
  Country: None (occurrence: None)
  Receive Date: 20120404
  Receipt Date: 20120328
  Transmission Date: 20120825
  Serious: Yes (Death, Other)
  Sender: FDA-Public Use
  Company Number: US-ELI_LILLY_AND_COMPANY-US201203008752

PATIENT
  Sex: Male

DRUGS (1)
  1. GEMZAR [Suspect]
     Dosage: 1930 MG, UNKNOWN
     Dates: start: 20110316, end: 20110401

REACTIONS (2)
  - NEOPLASM PROGRESSION [None]
  - DEATH [None]
